FAERS Safety Report 24150979 (Version 1)
Quarter: 2024Q3

REPORT INFORMATION
  Report Type: Spontaneous
  Country: FR (occurrence: FR)
  Receive Date: 20240730
  Receipt Date: 20240730
  Transmission Date: 20241017
  Serious: Yes (Other)
  Sender: RANBAXY
  Company Number: FR-AFSSAPS-AVNT2024000362

PATIENT
  Age: 56 Year
  Sex: Male

DRUGS (2)
  1. ACETAMINOPHEN [Suspect]
     Active Substance: ACETAMINOPHEN
     Indication: Product used for unknown indication
     Dosage: 1 CP MORNING, NOON, 2 CP EVENING AND NIGHT
     Route: 048
     Dates: start: 202311
  2. CODEINE [Suspect]
     Active Substance: CODEINE
     Indication: Product used for unknown indication
     Dosage: 1 CP MORNING, NOON, 2 CP EVENING AND NIGHT
     Route: 048
     Dates: start: 202311

REACTIONS (1)
  - Drug use disorder [Not Recovered/Not Resolved]
